FAERS Safety Report 9514577 (Version 1)
Quarter: 2013Q3

REPORT INFORMATION
  Report Type: Spontaneous
  Country: CN (occurrence: CN)
  Receive Date: 20130911
  Receipt Date: 20130911
  Transmission Date: 20140515
  Serious: Yes (Other)
  Sender: FDA-Public Use
  Company Number: CN-AMGEN-CHNSP2013063251

PATIENT
  Age: 25 Year
  Sex: Male
  Weight: 62 kg

DRUGS (5)
  1. ENBREL [Suspect]
     Indication: ANKYLOSING SPONDYLITIS
     Dosage: 25 MG, 1X/DAY
     Route: 058
     Dates: start: 20120201, end: 20120215
  2. METHOTREXATE [Concomitant]
     Dosage: UNK
  3. NIMESULIDE [Concomitant]
     Dosage: UNK
  4. SALAZOSULFAPYRIDINE [Concomitant]
     Dosage: UNK
  5. THALIDOMIDE [Concomitant]
     Dosage: UNK

REACTIONS (1)
  - Hepatocellular injury [Not Recovered/Not Resolved]
